FAERS Safety Report 6454797-X (Version None)
Quarter: 2009Q4

REPORT INFORMATION
  Report Type: 
  Country: None (occurrence: None)
  Receive Date: 20091118
  Receipt Date: 20091028
  Transmission Date: 20100525
  Serious: No
  Sender: FDA-Public Use
  Company Number: 287025

PATIENT
  Age: 6 Year
  Sex: Female
  Weight: 15.6 kg

DRUGS (4)
  1. NORDITROPIN [Suspect]
     Indication: GROWTH HORMONE DEFICIENCY
     Dosage: 0.5 MG, QD; 0.5 MG, QD
     Dates: start: 20090416, end: 20090428
  2. NORDITROPIN [Suspect]
     Indication: SMALL FOR DATES BABY
     Dosage: 0.5 MG, QD; 0.5 MG, QD
     Dates: start: 20090416, end: 20090428
  3. NORDITROPIN [Suspect]
     Indication: GROWTH HORMONE DEFICIENCY
     Dosage: 0.5 MG, QD; 0.5 MG, QD
     Dates: start: 20090505
  4. NORDITROPIN [Suspect]
     Indication: SMALL FOR DATES BABY
     Dosage: 0.5 MG, QD; 0.5 MG, QD
     Dates: start: 20090505

REACTIONS (7)
  - ALPHA HAEMOLYTIC STREPTOCOCCAL INFECTION [None]
  - AURICULAR SWELLING [None]
  - HAEMOPHILUS INFECTION [None]
  - HAIR FOLLICLE TUMOUR BENIGN [None]
  - NASOPHARYNGITIS [None]
  - NEISSERIA INFECTION [None]
  - VIRAL INFECTION [None]
